FAERS Safety Report 9973165 (Version 2)
Quarter: 2014Q1

REPORT INFORMATION
  Report Type: Report from Study
  Country: US (occurrence: US)
  Receive Date: 20140306
  Receipt Date: 20140306
  Transmission Date: 20141002
  Serious: Yes (Other)
  Sender: FDA-Public Use
  Company Number: US-ABBVIE-13P-163-1122807-00

PATIENT
  Age: 50 Year
  Sex: Female
  Weight: 50.85 kg

DRUGS (15)
  1. HUMIRA [Suspect]
     Indication: CROHN^S DISEASE
     Dosage: 1ST LOADING DOSE
     Route: 058
     Dates: start: 20130628, end: 20130628
  2. HUMIRA [Suspect]
     Dosage: 2 PENS, BUT WILL BE CONTINUING WITH 40 MG EOW, 2ND LOADING DOSE
     Route: 058
     Dates: start: 20130713, end: 20130713
  3. HUMIRA [Suspect]
     Route: 058
     Dates: start: 201307
  4. PROTONIX [Concomitant]
     Indication: PRODUCT USED FOR UNKNOWN INDICATION
  5. KLONOPIN [Concomitant]
     Indication: PRODUCT USED FOR UNKNOWN INDICATION
  6. VITAMIN B12 [Concomitant]
     Indication: PRODUCT USED FOR UNKNOWN INDICATION
  7. POTASSIUM [Concomitant]
     Indication: PRODUCT USED FOR UNKNOWN INDICATION
  8. AMITRIPTYLINE [Concomitant]
     Indication: PRODUCT USED FOR UNKNOWN INDICATION
  9. PROBIOTICS NOS [Concomitant]
     Indication: CLOSTRIDIUM DIFFICILE INFECTION
     Dates: start: 201306
  10. BENTYL [Concomitant]
     Indication: CLOSTRIDIUM DIFFICILE INFECTION
     Dates: start: 201306
  11. ENSURE [Concomitant]
     Indication: MALNUTRITION
     Dates: start: 2013
  12. PREDNISONE [Concomitant]
     Indication: PRODUCT USED FOR UNKNOWN INDICATION
  13. VITAMIN D [Concomitant]
     Indication: PRODUCT USED FOR UNKNOWN INDICATION
  14. MULTIVITAMIN [Concomitant]
     Indication: PRODUCT USED FOR UNKNOWN INDICATION
  15. CALCIUM [Concomitant]
     Indication: PRODUCT USED FOR UNKNOWN INDICATION

REACTIONS (7)
  - Clostridium difficile infection [Recovered/Resolved]
  - Decreased appetite [Not Recovered/Not Resolved]
  - Lethargy [Not Recovered/Not Resolved]
  - Asthenia [Not Recovered/Not Resolved]
  - Influenza like illness [Recovered/Resolved]
  - Nausea [Recovered/Resolved]
  - Infection [Not Recovered/Not Resolved]
